FAERS Safety Report 9093597 (Version 2)
Quarter: 2013Q1

REPORT INFORMATION
  Report Type: Spontaneous
  Country: US (occurrence: US)
  Receive Date: 20130201
  Receipt Date: 20130311
  Transmission Date: 20140127
  Serious: No
  Sender: FDA-Public Use
  Company Number: US-ASTRAZENECA-2013SE03990

PATIENT
  Age: 74 Year
  Sex: Male

DRUGS (2)
  1. SYMBICORT [Suspect]
     Indication: CHRONIC OBSTRUCTIVE PULMONARY DISEASE
     Dosage: 160 MCG 1 PUFF BID
     Route: 055
     Dates: start: 201206
  2. ZESTRIL [Suspect]
     Indication: HYPERTENSION
     Route: 048

REACTIONS (4)
  - Lung disorder [Unknown]
  - Hearing impaired [Unknown]
  - Intentional drug misuse [Recovered/Resolved]
  - Off label use [Unknown]
